FAERS Safety Report 9393147 (Version 1)
Quarter: 2013Q3

REPORT INFORMATION
  Report Type: Spontaneous
  Country: US (occurrence: US)
  Receive Date: 20130710
  Receipt Date: 20130710
  Transmission Date: 20140515
  Serious: Yes (Other)
  Sender: FDA-Public Use
  Company Number: US-SANOFI-AVENTIS-2013SA069460

PATIENT
  Age: 21 Year
  Sex: Female

DRUGS (4)
  1. RIFAMPICIN [Suspect]
     Indication: LYMPH NODE TUBERCULOSIS
     Route: 065
  2. PYRAZINAMIDE [Suspect]
     Indication: LYMPH NODE TUBERCULOSIS
     Route: 065
  3. ETHAMBUTOL [Suspect]
     Indication: LYMPH NODE TUBERCULOSIS
     Route: 065
  4. ISONIAZID [Suspect]
     Indication: LYMPH NODE TUBERCULOSIS
     Route: 065

REACTIONS (5)
  - Lymph node tuberculosis [Recovering/Resolving]
  - Condition aggravated [Recovering/Resolving]
  - Lymphadenopathy [Recovering/Resolving]
  - Pain [Recovering/Resolving]
  - Purulent discharge [Recovering/Resolving]
